FAERS Safety Report 16786556 (Version 9)
Quarter: 2020Q4

REPORT INFORMATION
  Report Type: Spontaneous
  Country: IN (occurrence: IN)
  Receive Date: 20190909
  Receipt Date: 20201001
  Transmission Date: 20210113
  Serious: Yes (Other)
  Sender: FDA-Public Use
  Company Number: IN-PFIZER INC-2019096706

PATIENT
  Age: 78 Year
  Sex: Female

DRUGS (6)
  1. PALBACE [Suspect]
     Active Substance: PALBOCICLIB
     Indication: BREAST CANCER METASTATIC
     Dosage: 125 MG, CYCLIC (ONCE A DAY)
     Route: 048
     Dates: start: 20171111
  2. CALCIROL [Concomitant]
     Dosage: UNK UNK, MONTHLY
     Route: 048
  3. ZOLDRIA [Concomitant]
     Active Substance: ZOLEDRONIC ACID
     Dosage: UNK (ONCE EVERY 6 MONTHS)
     Route: 042
     Dates: start: 20200214
  4. FEMARA [Concomitant]
     Active Substance: LETROZOLE
     Indication: BREAST CANCER METASTATIC
     Dosage: 2.5 MG, 1X/DAY
     Route: 048
     Dates: start: 20200214
  5. PALBACE [Suspect]
     Active Substance: PALBOCICLIB
     Dosage: 125 MG, CYCLIC (ONCE A DAY)
     Route: 048
     Dates: start: 20200217
  6. SHELCAL [Concomitant]
     Active Substance: CALCIUM CARBONATE\CHOLECALCIFEROL
     Dosage: UNK, 1X/DAY
     Route: 048

REACTIONS (5)
  - Nephrolithiasis [Unknown]
  - Urinary tract infection [Unknown]
  - Pain [Unknown]
  - Ureterolithiasis [Unknown]
  - Dysuria [Unknown]
